FAERS Safety Report 13645529 (Version 1)
Quarter: 2017Q2

REPORT INFORMATION
  Report Type: Spontaneous
  Country: US (occurrence: US)
  Receive Date: 20170613
  Receipt Date: 20170613
  Transmission Date: 20170830
  Serious: Yes (Hospitalization)
  Sender: FDA-Public Use
  Company Number: US-CHARTWELL PHARMA-2021877

PATIENT
  Age: 82 Year
  Sex: Male

DRUGS (4)
  1. AMPICILLIN [Concomitant]
     Active Substance: AMPICILLIN
  2. CEFTRIAXONE. [Concomitant]
     Active Substance: CEFTRIAXONE
  3. ACYCLOVIR. [Suspect]
     Active Substance: ACYCLOVIR
     Indication: HERPES ZOSTER
  4. VALACYCLOVIR [Suspect]
     Active Substance: VALACYCLOVIR HYDROCHLORIDE

REACTIONS (2)
  - Encephalopathy [Recovered/Resolved]
  - CSF test abnormal [Recovered/Resolved]
